FAERS Safety Report 9009681 (Version 1)
Quarter: 2013Q1

REPORT INFORMATION
  Report Type: Spontaneous
  Country: IN (occurrence: IN)
  Receive Date: 20130110
  Receipt Date: 20130110
  Transmission Date: 20140127
  Serious: Yes (Other)
  Sender: FDA-Public Use
  Company Number: ZA-ASTRAZENECA-2013SE00081

PATIENT
  Age: 18262 Day
  Sex: Male
  Weight: 70 kg

DRUGS (3)
  1. BUPIVACAINE [Suspect]
     Route: 037
  2. HYPOGLYCAEMIC AGENT [Concomitant]
  3. SALINE [Concomitant]
     Route: 042

REACTIONS (2)
  - Aphasia [Recovered/Resolved]
  - Apnoea [Recovered/Resolved]
